FAERS Safety Report 9315232 (Version 1)
Quarter: 2013Q2

REPORT INFORMATION
  Report Type: Spontaneous
  Country: US (occurrence: US)
  Receive Date: 20130529
  Receipt Date: 20130529
  Transmission Date: 20140414
  Serious: Yes (Other)
  Sender: FDA-Public Use
  Company Number: US-FRI-1000045432

PATIENT
  Age: 67 Year
  Sex: Male

DRUGS (5)
  1. VIIBRYD [Suspect]
     Indication: DEPRESSION
     Dosage: 10 MG
     Route: 048
  2. VIIBRYD [Suspect]
     Indication: ANXIETY
     Dosage: 20 MG
     Route: 048
  3. VIIBRYD [Suspect]
     Dosage: 40 MG
     Route: 048
  4. AMLODIPINE [Concomitant]
     Indication: HYPERTENSION
  5. CLONIDINE [Concomitant]
     Indication: HYPERTENSION

REACTIONS (1)
  - Blood pressure increased [Recovered/Resolved]
